FAERS Safety Report 22640543 (Version 1)
Quarter: 2023Q2

REPORT INFORMATION
  Report Type: Report from Study
  Country: MX (occurrence: MX)
  Receive Date: 20230626
  Receipt Date: 20230626
  Transmission Date: 20230722
  Serious: Yes (Other)
  Sender: FDA-Public Use
  Company Number: MX-002147023-NVSC2023MX143924

PATIENT
  Age: 32 Year
  Sex: Male
  Weight: 87 kg

DRUGS (4)
  1. COSENTYX [Suspect]
     Active Substance: SECUKINUMAB
     Indication: HLA marker study positive
     Dosage: 1 DOSAGE FORM, QW (150 MG)
     Route: 058
     Dates: start: 20220720
  2. COSENTYX [Suspect]
     Active Substance: SECUKINUMAB
     Indication: Sacroiliitis
     Dosage: 1 DOSAGE FORM, QMO (150 MG)
     Route: 058
  3. COSENTYX [Suspect]
     Active Substance: SECUKINUMAB
     Indication: Retinal vasculitis
  4. CELECOXIB [Concomitant]
     Active Substance: CELECOXIB
     Indication: Pain
     Dosage: 1 DOSAGE FORM (200MG)
     Route: 048

REACTIONS (5)
  - Chorioretinitis [Unknown]
  - Back pain [Not Recovered/Not Resolved]
  - Musculoskeletal pain [Unknown]
  - Musculoskeletal stiffness [Unknown]
  - Product use in unapproved indication [Unknown]

NARRATIVE: CASE EVENT DATE: 20220720
